FAERS Safety Report 7334708-5 (Version None)
Quarter: 2011Q1

REPORT INFORMATION
  Report Type: 
  Country: None (occurrence: None)
  Receive Date: 20110307
  Receipt Date: 20110224
  Transmission Date: 20110831
  Serious: Yes (Other)
  Sender: FDA-Public Use
  Company Number: FR-JNJFOC-20110300467

PATIENT
  Age: 66 Year
  Sex: Male

DRUGS (6)
  1. TAVANIC [Suspect]
     Indication: SINUSITIS
     Route: 048
  2. TAVANIC [Suspect]
     Route: 048
  3. TAVANIC [Suspect]
     Indication: BRONCHITIS
     Route: 048
  4. AMOXICILLIN [Concomitant]
     Route: 065
  5. ASPEGIC 325 [Concomitant]
     Route: 065
  6. TAVANIC [Suspect]
     Route: 048

REACTIONS (1)
  - PARALYSIS [None]
